FAERS Safety Report 25636880 (Version 6)
Quarter: 2025Q4

REPORT INFORMATION
  Report Type: Spontaneous
  Country: CA (occurrence: CA)
  Receive Date: 20250804
  Receipt Date: 20251230
  Transmission Date: 20260117
  Serious: Yes (Hospitalization, Other)
  Sender: KARYOPHARM THERAPEUTICS
  Company Number: CA-KARYOPHARM-2025KPT100162

PATIENT

DRUGS (11)
  1. SELINEXOR [Suspect]
     Active Substance: SELINEXOR
     Indication: Plasma cell myeloma
     Dosage: 60 MILLIGRAM EVERY 7 DAY
     Route: 048
     Dates: start: 20250403, end: 20250417
  2. SELINEXOR [Suspect]
     Active Substance: SELINEXOR
     Dosage: 60 MILLIGRAM EVERY 1 WEEK
     Route: 048
     Dates: start: 20250424, end: 202505
  3. SELINEXOR [Suspect]
     Active Substance: SELINEXOR
     Dosage: 60 MILLIGRAM EVERY 1 WEEK
     Route: 048
     Dates: start: 2025, end: 2025
  4. SELINEXOR [Suspect]
     Active Substance: SELINEXOR
     Dosage: 40 MILLIGRAM (S) EVERY 1 WEEK
     Route: 048
     Dates: start: 202507, end: 20250710
  5. SELINEXOR [Suspect]
     Active Substance: SELINEXOR
     Dosage: 60 MILLIGRAM EVERY 1 WEEK
     Route: 048
     Dates: start: 202507, end: 202510
  6. SELINEXOR [Suspect]
     Active Substance: SELINEXOR
     Dosage: 40 MILLIGRAMS EVERY 1 WEEK
     Route: 065
     Dates: start: 202511, end: 2025
  7. SELINEXOR [Suspect]
     Active Substance: SELINEXOR
     Dosage: 40 MILLIGRAM(S) EVERY 1 WEEK
     Route: 048
     Dates: start: 202512, end: 202512
  8. SELINEXOR [Suspect]
     Active Substance: SELINEXOR
     Dosage: 40 MILLIGRAM(S) EVERY 1 WEEK
     Route: 048
     Dates: start: 202512, end: 202512
  9. DEXAMETHASONE [Concomitant]
     Active Substance: DEXAMETHASONE
     Indication: Product used for unknown indication
  10. BORTEZOMIB [Concomitant]
     Active Substance: BORTEZOMIB
     Indication: Product used for unknown indication
     Route: 065
     Dates: start: 20250403, end: 20250710
  11. BORTEZOMIB [Concomitant]
     Active Substance: BORTEZOMIB
     Dosage: UNKNOWN

REACTIONS (11)
  - Dementia [Not Recovered/Not Resolved]
  - Asthenia [Unknown]
  - Blood test abnormal [Unknown]
  - Aggression [Unknown]
  - Emotional disorder [Unknown]
  - Weight decreased [Unknown]
  - Fatigue [Unknown]
  - Nausea [Recovered/Resolved]
  - Neutrophil count decreased [Unknown]
  - Treatment delayed [Unknown]
  - Therapy interrupted [Unknown]

NARRATIVE: CASE EVENT DATE: 20250101
